FAERS Safety Report 6549242-X (Version None)
Quarter: 2010Q1

REPORT INFORMATION
  Report Type: 
  Country: None (occurrence: None)
  Receive Date: 20100125
  Receipt Date: 20100115
  Transmission Date: 20100710
  Serious: Yes (Other)
  Sender: FDA-Public Use
  Company Number: CA-ASTRAZENECA-2010SE01958

PATIENT
  Sex: Female

DRUGS (2)
  1. CRESTOR [Suspect]
     Route: 048
  2. RAMIPRIL [Concomitant]

REACTIONS (3)
  - ASTHENIA [None]
  - EYE DISORDER [None]
  - OPTIC NERVE DISORDER [None]
